FAERS Safety Report 24737361 (Version 1)
Quarter: 2024Q4

REPORT INFORMATION
  Report Type: Spontaneous
  Country: US (occurrence: None)
  Receive Date: 20241213
  Receipt Date: 20241213
  Transmission Date: 20250114
  Serious: Yes (Hospitalization)
  Sender: Public
  Company Number: None

PATIENT
  Age: 33 Year
  Sex: Male

DRUGS (1)
  1. CEFTRIAXONE [Suspect]
     Active Substance: CEFTRIAXONE
     Indication: Infection
     Dates: start: 20241129, end: 20241129

REACTIONS (2)
  - Anaphylactic reaction [None]
  - Angioedema [None]

NARRATIVE: CASE EVENT DATE: 20241129
